FAERS Safety Report 25118591 (Version 1)
Quarter: 2025Q1

REPORT INFORMATION
  Report Type: Spontaneous
  Country: US (occurrence: US)
  Receive Date: 20250325
  Receipt Date: 20250325
  Transmission Date: 20250408
  Serious: Yes (Other)
  Sender: UCB
  Company Number: US-UCBSA-2025016852

PATIENT
  Sex: Female

DRUGS (6)
  1. KEPPRA [Suspect]
     Active Substance: LEVETIRACETAM
     Indication: Juvenile myoclonic epilepsy
  2. KEPPRA [Suspect]
     Active Substance: LEVETIRACETAM
     Indication: Idiopathic generalised epilepsy
  3. KEPPRA [Suspect]
     Active Substance: LEVETIRACETAM
     Indication: Anxiety disorder
  4. LAMICTAL [Concomitant]
     Active Substance: LAMOTRIGINE
     Indication: Juvenile myoclonic epilepsy
     Dosage: 350 MILLIGRAM, ONCE DAILY (QD)
  5. CLONIDINE [Concomitant]
     Active Substance: CLONIDINE
  6. VALTOCO [Concomitant]
     Active Substance: DIAZEPAM
     Indication: Epilepsy
     Route: 045

REACTIONS (5)
  - Juvenile myoclonic epilepsy [Unknown]
  - Depression [Unknown]
  - Anxiety [Unknown]
  - Hyperacusis [Unknown]
  - Therapeutic product effect incomplete [Unknown]
